FAERS Safety Report 17871034 (Version 2)
Quarter: 2020Q3

REPORT INFORMATION
  Report Type: Spontaneous
  Country: US (occurrence: US)
  Receive Date: 20200608
  Receipt Date: 20200717
  Transmission Date: 20201103
  Serious: Yes (Other)
  Sender: FDA-Public Use
  Company Number: US-ASTRAZENECA-2020SE69768

PATIENT
  Age: 28623 Day
  Sex: Male

DRUGS (1)
  1. SYMBICORT [Suspect]
     Active Substance: BUDESONIDE\FORMOTEROL FUMARATE DIHYDRATE
     Indication: TOTAL LUNG CAPACITY DECREASED
     Dosage: 160/ 4.5 MCG. TWO PUFFS TWICE EACH DAY.
     Route: 055
     Dates: start: 20200520

REACTIONS (5)
  - Fall [Recovered/Resolved]
  - Product taste abnormal [Unknown]
  - Incorrect dose administered by device [Recovered/Resolved]
  - Dyspnoea [Recovered/Resolved]
  - Device issue [Unknown]

NARRATIVE: CASE EVENT DATE: 20200525
